FAERS Safety Report 5530359-3 (Version None)
Quarter: 2007Q4

REPORT INFORMATION
  Report Type: 
  Country: None (occurrence: None)
  Receive Date: 20071130
  Receipt Date: 20070926
  Transmission Date: 20080405
  Serious: No
  Sender: FDA-Public Use
  Company Number: A0684341A

PATIENT
  Age: 3 Year
  Sex: Female

DRUGS (3)
  1. AMOXICILLIN + CLAVULANATE POTASSIUM [Suspect]
     Route: 048
     Dates: start: 20070901, end: 20070901
  2. MIRALAX [Concomitant]
  3. MILK OF MAGNESIA [Concomitant]

REACTIONS (1)
  - TOOTH DISCOLOURATION [None]
